FAERS Safety Report 7725380-0 (Version None)
Quarter: 2011Q3

REPORT INFORMATION
  Report Type: 
  Country: None (occurrence: None)
  Receive Date: 20110902
  Receipt Date: 20110829
  Transmission Date: 20111222
  Serious: Yes (Other)
  Sender: FDA-Public Use
  Company Number: US-TEVA-146929USA

PATIENT
  Sex: Female
  Weight: 74.91 kg

DRUGS (1)
  1. AZITHROMYCIN [Suspect]
     Indication: PNEUMONIA
     Dosage: 500 MILLIGRAM;
     Route: 048
     Dates: start: 20060710, end: 20060712

REACTIONS (8)
  - WEIGHT DECREASED [None]
  - ANGLE CLOSURE GLAUCOMA [None]
  - VOMITING [None]
  - NAUSEA [None]
  - NECK PAIN [None]
  - ASTHENIA [None]
  - EYE PAIN [None]
  - HEADACHE [None]
